FAERS Safety Report 5927928-5 (Version None)
Quarter: 2008Q4

REPORT INFORMATION
  Report Type: 
  Country: None (occurrence: None)
  Receive Date: 20081023
  Receipt Date: 20081017
  Transmission Date: 20090506
  Serious: Yes (Death, Hospitalization, Disabling, Other)
  Sender: FDA-Public Use
  Company Number: CA-AVENTIS-200814941GDDC

PATIENT
  Age: 66 Year
  Sex: Male
  Weight: 100 kg

DRUGS (24)
  1. DOCETAXEL [Suspect]
     Route: 042
     Dates: start: 20080308, end: 20080308
  2. DOCETAXEL [Suspect]
     Route: 042
     Dates: start: 20080417, end: 20080417
  3. PREDNISONE TAB [Suspect]
     Route: 048
     Dates: start: 20080327
  4. MONOCLONAL ANTIBODIES [Suspect]
     Route: 042
     Dates: start: 20080308, end: 20080308
  5. MONOCLONAL ANTIBODIES [Suspect]
     Route: 042
     Dates: start: 20080417, end: 20080417
  6. ENTROPHEN [Concomitant]
     Route: 048
     Dates: start: 20000201, end: 20080426
  7. ENTROPHEN [Concomitant]
     Route: 048
     Dates: start: 20080429, end: 20080501
  8. PANTOPRAZOLE SODIUM [Concomitant]
     Route: 048
  9. ATROVENT [Concomitant]
     Route: 048
  10. NAPROXEN [Concomitant]
     Route: 048
  11. ACETAMINOPHEN [Concomitant]
     Route: 048
     Dates: start: 20080327
  12. MEGESTROL ACETATE [Concomitant]
     Route: 048
     Dates: start: 20080204
  13. CEPHULAC [Concomitant]
     Route: 048
     Dates: start: 20080429
  14. LIPITOR [Concomitant]
     Route: 048
     Dates: start: 20000201, end: 20080227
  15. LIPITOR [Concomitant]
     Dates: start: 20080429
  16. LOPRESSOR [Concomitant]
     Route: 048
     Dates: start: 20000201, end: 20080424
  17. LOPRESSOR [Concomitant]
     Route: 048
     Dates: start: 20080429, end: 20080506
  18. VIT D [Concomitant]
     Route: 048
     Dates: start: 20080429
  19. COLACE [Concomitant]
     Route: 048
     Dates: start: 20080429
  20. SENOKOT                            /00142201/ [Concomitant]
     Route: 048
     Dates: start: 20080429
  21. NITROLINGUAL [Concomitant]
  22. ZOLADEX [Concomitant]
     Route: 048
  23. ZOMETA [Concomitant]
     Route: 042
  24. CALCIUM [Concomitant]
     Route: 048
     Dates: start: 20080414, end: 20080429

REACTIONS (8)
  - ANAEMIA [None]
  - ASTHENIA [None]
  - COLITIS ISCHAEMIC [None]
  - DIVERTICULITIS [None]
  - FALL [None]
  - GASTROINTESTINAL FUNGAL INFECTION [None]
  - MYOCARDIAL INFARCTION [None]
  - RECTAL HAEMORRHAGE [None]
